FAERS Safety Report 13565196 (Version 3)
Quarter: 2017Q2

REPORT INFORMATION
  Report Type: Report from Study
  Country: PL (occurrence: PL)
  Receive Date: 20170519
  Receipt Date: 20170526
  Transmission Date: 20170830
  Serious: Yes (Hospitalization)
  Sender: FDA-Public Use
  Company Number: PL-OTSUKA-2017_010827

PATIENT
  Age: 57 Year
  Sex: Male
  Weight: 86 kg

DRUGS (14)
  1. TOLVAPTAN [Suspect]
     Active Substance: TOLVAPTAN
     Indication: CONGENITAL CYSTIC KIDNEY DISEASE
     Dosage: 90 MG, QD (IN MORNING)
     Route: 048
     Dates: start: 20160316
  2. TOLVAPTAN [Suspect]
     Active Substance: TOLVAPTAN
     Dosage: PLACEBO, QD (IN MORNING)
     Route: 048
     Dates: start: 20160203, end: 20170208
  3. TOLVAPTAN [Suspect]
     Active Substance: TOLVAPTAN
     Dosage: 60 MG, QD (2 TABS OF 30 MG IN MORNING) (TOLVAPTAN TITRATION PHASE)
     Route: 048
     Dates: start: 20160209, end: 20160212
  4. TOLVAPTAN [Suspect]
     Active Substance: TOLVAPTAN
     Dosage: 30 MG, QD (3 TABS OF 30 MG IN MORNING) (TOLVAPTAN RUN IN PHASE)
     Route: 048
     Dates: start: 20160223, end: 20160316
  5. TOLVAPTAN [Suspect]
     Active Substance: TOLVAPTAN
     Dosage: 90 MG, QD (3 TABS OF 30 MG IN MORNING) (TOLVAPTAN TITRATION PHASE)
     Route: 048
     Dates: start: 20160213, end: 20160223
  6. DOXAZOSIN [Concomitant]
     Active Substance: DOXAZOSIN\DOXAZOSIN MESYLATE
     Indication: HYPERTENSION
     Dosage: 2 MG, BID
     Route: 048
     Dates: start: 2009
  7. TOLVAPTAN [Suspect]
     Active Substance: TOLVAPTAN
     Dosage: PLACEBO, QD (IN EVENING)
     Route: 048
     Dates: start: 20160203, end: 20170208
  8. LACIDIPINE [Concomitant]
     Active Substance: LACIDIPINE
     Indication: HYPERTENSION
     Dosage: 4 MG, QD
     Route: 048
     Dates: start: 2009
  9. VALSARTAN. [Concomitant]
     Active Substance: VALSARTAN
     Indication: HYPERTENSION
     Dosage: 160 MG, QD
     Route: 048
     Dates: start: 2009
  10. TOLVAPTAN [Suspect]
     Active Substance: TOLVAPTAN
     Dosage: 30 MG, QD (1 TAB OF 30 MG IN EVENING) (TOLVAPTAN TITRATION PHASE)
     Route: 048
     Dates: start: 20160213, end: 20160223
  11. TOLVAPTAN [Suspect]
     Active Substance: TOLVAPTAN
     Dosage: 30 MG, QD (1 TAB OF 30 MG IN EVENING) (TOLVAPTAN TITRATION PHASE)
     Route: 048
     Dates: start: 20160209, end: 20160212
  12. TOLVAPTAN [Suspect]
     Active Substance: TOLVAPTAN
     Dosage: 30 MG, QD (IN EVENING)
     Route: 048
     Dates: start: 20160316
  13. TOLVAPTAN [Suspect]
     Active Substance: TOLVAPTAN
     Dosage: 90 MG, QD (3 TABS OF 30 MG IN MORNING) (TOLVAPTAN RUN IN PHASE)
     Route: 048
     Dates: start: 20160223, end: 20160316
  14. METOPROLOL. [Concomitant]
     Active Substance: METOPROLOL
     Indication: HYPERTENSION
     Dosage: 50 MG, QD
     Route: 048
     Dates: start: 2009

REACTIONS (2)
  - Hepatic enzyme increased [Recovered/Resolved]
  - Hepatic enzyme increased [Recovered/Resolved]

NARRATIVE: CASE EVENT DATE: 20160903
